FAERS Safety Report 8185240 (Version 4)
Quarter: 2013Q1

REPORT INFORMATION
  Report Type: Spontaneous
  Country: US (occurrence: US)
  Receive Date: 20111018
  Receipt Date: 20130213
  Transmission Date: 20140127
  Serious: Yes (Hospitalization, Other)
  Sender: FDA-Public Use
  Company Number: US-ASTRAZENECA-2011SE08600

PATIENT
  Age: 71 Year
  Sex: Female

DRUGS (1)
  1. SYMBICORT PMDI [Suspect]
     Indication: ASTHMA
     Dosage: 160/4.5 MCG DAILY
     Route: 055

REACTIONS (8)
  - Malaise [Unknown]
  - Influenza [Unknown]
  - Malaise [Unknown]
  - Bronchopneumonia [Unknown]
  - Pneumonia [Unknown]
  - Bronchitis [Unknown]
  - Nasopharyngitis [Unknown]
  - Oropharyngeal pain [Unknown]
